FAERS Safety Report 21849068 (Version 1)
Quarter: 2023Q1

REPORT INFORMATION
  Report Type: Spontaneous
  Country: FR (occurrence: FR)
  Receive Date: 20230111
  Receipt Date: 20230111
  Transmission Date: 20230417
  Serious: Yes (Hospitalization)
  Sender: FDA-Public Use
  Company Number: None

PATIENT
  Age: 76 Year
  Sex: Male
  Weight: 54 kg

DRUGS (15)
  1. PACLITAXEL [Suspect]
     Active Substance: PACLITAXEL
     Indication: Lung squamous cell carcinoma recurrent
     Route: 042
     Dates: start: 20220712
  2. PEMBROLIZUMAB [Suspect]
     Active Substance: PEMBROLIZUMAB
     Indication: Lung squamous cell carcinoma recurrent
     Route: 042
     Dates: start: 20220712
  3. CARBOPLATIN [Suspect]
     Active Substance: CARBOPLATIN
     Indication: Lung squamous cell carcinoma recurrent
     Route: 042
     Dates: start: 20220712
  4. AERIUS 5 mg, orodispersible tablet [Concomitant]
     Indication: Product used for unknown indication
  5. NASACORT 55 micrograms per dose, nasal spray suspension [Concomitant]
     Indication: Product used for unknown indication
  6. VENTOLINE 100 micrograms/dose, inhalation suspension in pressurized bo [Concomitant]
     Indication: Product used for unknown indication
  7. CONTRAMAL 50 mg, capsule [Concomitant]
     Indication: Product used for unknown indication
  8. LAROXYL ROCHE 40 mg/ml, drinkable solution [Concomitant]
     Indication: Product used for unknown indication
  9. SPIOLTO RESPIMAT 2.5 micrograms/ 2.5 micrograms/ dose, inhalation solu [Concomitant]
     Indication: Product used for unknown indication
  10. PREGABALINE ACCORD 150 mg, capsule [Concomitant]
     Indication: Product used for unknown indication
  11. EFFEXOR 37.5 mg, compressed [Concomitant]
     Indication: Product used for unknown indication
  12. KEPPRA 500 mg, coated tablet [Concomitant]
     Indication: Product used for unknown indication
  13. PULMICORT TURBUHALER 400 micrograms/dose, inhalation powder [Concomitant]
     Indication: Product used for unknown indication
  14. DOLIPRANE 1000 mg, compressed [Concomitant]
     Indication: Product used for unknown indication
  15. ELIQUIS 5 mg,  coated tablet [Concomitant]
     Indication: Product used for unknown indication

REACTIONS (1)
  - Cerebral ischaemia [Recovering/Resolving]

NARRATIVE: CASE EVENT DATE: 20220912
